FAERS Safety Report 7330553-5 (Version None)
Quarter: 2011Q1

REPORT INFORMATION
  Report Type: 
  Country: None (occurrence: None)
  Receive Date: 20110304
  Receipt Date: 20110224
  Transmission Date: 20110831
  Serious: Yes (Hospitalization)
  Sender: FDA-Public Use
  Company Number: US-BIOGENIDEC-2011BI007346

PATIENT
  Age: 52 Year
  Sex: Female
  Weight: 49 kg

DRUGS (11)
  1. PRISTIQ [Concomitant]
     Route: 048
  2. OXYBUTYNIN [Concomitant]
  3. TOPAMAX [Concomitant]
  4. VITAMIN D [Concomitant]
  5. RESTORIL [Concomitant]
  6. TYSABRI [Suspect]
     Indication: MULTIPLE SCLEROSIS
     Route: 042
     Dates: start: 20081016
  7. CLONAZEPAM [Concomitant]
  8. BUSPIRONE HCL [Concomitant]
     Route: 048
  9. REMERON [Concomitant]
  10. DIHYDROERGOTAMINE MESYLATE [Concomitant]
     Indication: MIGRAINE
     Route: 042
  11. MULTI-VITAMIN [Concomitant]

REACTIONS (1)
  - MAJOR DEPRESSION [None]
